FAERS Safety Report 5911965-0 (Version None)
Quarter: 2008Q4

REPORT INFORMATION
  Report Type: 
  Country: None (occurrence: None)
  Receive Date: 20081008
  Receipt Date: 20081001
  Transmission Date: 20090506
  Serious: Yes (Hospitalization, Other)
  Sender: FDA-Public Use
  Company Number: PHHY2008JP23372

PATIENT
  Age: 43 Year
  Sex: Female

DRUGS (2)
  1. CYCLOSPORINE [Suspect]
     Indication: APLASTIC ANAEMIA
  2. CYCLOPHOSPHAMIDE [Concomitant]

REACTIONS (5)
  - ANAPLASTIC LARGE CELL LYMPHOMA T- AND NULL-CELL TYPES [None]
  - BONE MARROW FAILURE [None]
  - GRAFT VERSUS HOST DISEASE [None]
  - STEM CELL TRANSPLANT [None]
  - VARICES OESOPHAGEAL [None]
